FAERS Safety Report 7685111 (Version 3)
Quarter: 2013Q3

REPORT INFORMATION
  Report Type: Report from Study
  Country: FR (occurrence: FR)
  Receive Date: 20101129
  Receipt Date: 20130815
  Transmission Date: 20140515
  Serious: Yes (Hospitalization)
  Sender: FDA-Public Use
  Company Number: FR-ROCHE-743062

PATIENT
  Age: 77 Year
  Sex: Male
  Weight: 72 kg

DRUGS (4)
  1. BEVACIZUMAB [Suspect]
     Indication: BRONCHIAL CARCINOMA
     Dosage: FREQUENCY: D1/ D21, DOSE: 7.5 MG/KG
     Route: 042
     Dates: start: 20100813, end: 20101108
  2. BEVACIZUMAB [Suspect]
     Indication: NON-SMALL CELL LUNG CANCER
  3. TAXOL [Concomitant]
     Indication: BRONCHIAL CARCINOMA
     Dosage: DOSE 60/M^2
     Route: 042
  4. CARBOPLATIN [Concomitant]
     Indication: BRONCHIAL CARCINOMA
     Dosage: DOSE 320
     Route: 042

REACTIONS (1)
  - Subcutaneous emphysema [Recovered/Resolved]
